FAERS Safety Report 4982471-5 (Version None)
Quarter: 2006Q2

REPORT INFORMATION
  Report Type: 
  Country: None (occurrence: None)
  Receive Date: 20060419
  Receipt Date: 20060411
  Transmission Date: 20061013
  Serious: Yes (Other)
  Sender: FDA-Public Use
  Company Number: 2006050036

PATIENT
  Age: 54 Year
  Sex: Male
  Weight: 109.3169 kg

DRUGS (11)
  1. LIPITOR [Suspect]
     Indication: BLOOD CHOLESTEROL INCREASED
     Dosage: 20 MG (20 MG, 1 IN 1 D)
     Dates: end: 20051001
  2. NEURONTIN [Suspect]
     Indication: NEUROPATHY
     Dosage: 1200 MG (600 MG, 1 IN 1 D)
  3. CAPTOPRIL [Suspect]
     Indication: HYPERTENSION
     Dosage: 200 MG (100 MG, 2 IN 1 D)
     Dates: end: 20051001
  4. ACTOS [Suspect]
     Indication: INSULIN-REQUIRING TYPE II DIABETES MELLITUS
     Dosage: 45 MG (45 MG, 1 IN 1D)
     Dates: end: 20051001
  5. INSULIN [Concomitant]
  6. ASPIRIN [Concomitant]
  7. NITRO PATCH (GLYCERYL TRINITRATE) [Concomitant]
  8. ZOLOFT [Concomitant]
  9. LANOXIN [Concomitant]
  10. TORSEMIDE [Concomitant]
  11. VITAMINS (VITAMINS) [Concomitant]

REACTIONS (8)
  - ANAEMIA [None]
  - ASTHENIA [None]
  - BLOOD POTASSIUM INCREASED [None]
  - CORONARY ARTERY OCCLUSION [None]
  - DIFFICULTY IN WALKING [None]
  - LETHARGY [None]
  - RENAL FAILURE [None]
  - RHABDOMYOLYSIS [None]
